FAERS Safety Report 8269228-7 (Version None)
Quarter: 2012Q1

REPORT INFORMATION
  Report Type: 
  Country: None (occurrence: None)
  Receive Date: 20120327
  Receipt Date: 20090806
  Transmission Date: 20120608
  Serious: Yes (Other)
  Sender: FDA-Public Use
  Company Number: PHEH2009US05621

PATIENT
  Age: 80 Year
  Sex: Female

DRUGS (2)
  1. GLEEVEC [Suspect]
     Indication: SOFT TISSUE NEOPLASM
     Dosage: 400 MG/DAY 400 MG, QD, ORAL
     Route: 048
     Dates: start: 20090101
  2. GLEEVEC [Suspect]
     Indication: SOFT TISSUE NEOPLASM
     Dosage: 400 MG/DAY 400 MG, QD, ORAL
     Route: 048
     Dates: start: 20090521, end: 20090101

REACTIONS (4)
  - GASTROINTESTINAL STROMAL TUMOUR [None]
  - NAUSEA [None]
  - THERAPY RESPONDER [None]
  - MALIGNANT TUMOUR EXCISION [None]
